FAERS Safety Report 26208099 (Version 1)
Quarter: 2025Q4

REPORT INFORMATION
  Report Type: Report from Study
  Country: US (occurrence: US)
  Receive Date: 20251229
  Receipt Date: 20251229
  Transmission Date: 20260118
  Serious: Yes (Other)
  Sender: INSMED
  Company Number: US-INSMED, INC.-2025-07893-US

PATIENT
  Sex: Female

DRUGS (3)
  1. ARIKAYCE [Suspect]
     Active Substance: AMIKACIN
     Indication: Mycobacterial infection
     Dosage: 590 MILLIGRAM, QOD
     Route: 055
     Dates: start: 2025, end: 2025
  2. METOPROLOL [Concomitant]
     Active Substance: METOPROLOL
     Indication: Mitral valve prolapse
     Dosage: UNK, UNK
     Route: 065
  3. METOPROLOL [Concomitant]
     Active Substance: METOPROLOL
     Indication: Ventricular extrasystoles

REACTIONS (10)
  - Ventricular extrasystoles [Recovering/Resolving]
  - Migraine [Recovering/Resolving]
  - Epistaxis [Unknown]
  - Cough [Recovering/Resolving]
  - Oropharyngeal pain [Recovering/Resolving]
  - Headache [Recovering/Resolving]
  - Tinnitus [Recovering/Resolving]
  - Fatigue [Recovering/Resolving]
  - Off label use [Unknown]
  - Device issue [Unknown]

NARRATIVE: CASE EVENT DATE: 20250101
